FAERS Safety Report 23999712 (Version 1)
Quarter: 2024Q2

REPORT INFORMATION
  Report Type: Spontaneous
  Country: US (occurrence: None)
  Receive Date: 20240620
  Receipt Date: 20240620
  Transmission Date: 20240717
  Serious: Yes (Hospitalization)
  Sender: FDA-Public Use
  Company Number: None

PATIENT
  Age: 83 Year
  Sex: Male
  Weight: 77.8 kg

DRUGS (22)
  1. TECLISTAMAB [Suspect]
     Active Substance: TECLISTAMAB
     Indication: Plasma cell myeloma refractory
     Route: 058
     Dates: start: 20231127, end: 20240412
  2. TECLISTAMAB [Suspect]
     Active Substance: TECLISTAMAB
     Indication: Amyloidosis
  3. Acyclovir, [Concomitant]
  4. acetaminophen PRN [Concomitant]
  5. AMIODARONE [Concomitant]
     Active Substance: AMIODARONE
  6. ASPIRIN [Concomitant]
     Active Substance: ASPIRIN
  7. SIMBRINZA [Concomitant]
     Active Substance: BRIMONIDINE TARTRATE\BRINZOLAMIDE
  8. CYANOCOBALAMIN [Concomitant]
     Active Substance: CYANOCOBALAMIN
  9. FERROUS SULFATE [Concomitant]
     Active Substance: FERROUS SULFATE
  10. FINASTERIDE [Concomitant]
     Active Substance: FINASTERIDE
  11. FOLIC ACID [Concomitant]
     Active Substance: FOLIC ACID
  12. FUROSEMIDE [Concomitant]
     Active Substance: FUROSEMIDE
  13. HEPARIN [Concomitant]
     Active Substance: HEPARIN SODIUM
  14. LATANOPROST [Concomitant]
     Active Substance: LATANOPROST
  15. LEVOTHYROXINE [Concomitant]
     Active Substance: LEVOTHYROXINE\LEVOTHYROXINE SODIUM
  16. LIDOCAINE PATCH [Concomitant]
     Active Substance: LIDOCAINE
  17. MELATONIN [Concomitant]
     Active Substance: MELATONIN
  18. MICAFUNGIN [Concomitant]
     Active Substance: MICAFUNGIN SODIUM
  19. ondansetron PRN [Concomitant]
  20. PSYLLIUM [Concomitant]
     Active Substance: PLANTAGO SEED
  21. BACTRIM [Concomitant]
     Active Substance: SULFAMETHOXAZOLE\TRIMETHOPRIM
  22. TAMSULOSIN [Concomitant]
     Active Substance: TAMSULOSIN

REACTIONS (2)
  - Diarrhoea [None]
  - Colitis [None]

NARRATIVE: CASE EVENT DATE: 20240520
